FAERS Safety Report 11008321 (Version 1)
Quarter: 2015Q2

REPORT INFORMATION
  Report Type: Spontaneous
  Country: CN (occurrence: CN)
  Receive Date: 20150410
  Receipt Date: 20150410
  Transmission Date: 20150821
  Serious: Yes (Other)
  Sender: FDA-Public Use
  Company Number: CN-AMGEN-CHNSP2015033521

PATIENT
  Age: 36 Year
  Sex: Female

DRUGS (2)
  1. NEUPOGEN [Suspect]
     Active Substance: FILGRASTIM
     Indication: HAEMATOPOIETIC STEM CELL MOBILISATION
     Dosage: 300 MU, QD
     Route: 058
  2. NORETHISTERONE [Concomitant]
     Active Substance: NORETHINDRONE
     Indication: MENSTRUATION DELAYED
     Dosage: 5000 MUG, TID

REACTIONS (7)
  - Monocyte count increased [Recovered/Resolved]
  - Bone marrow failure [Unknown]
  - Neutropenia [Recovered/Resolved]
  - Lymphocyte count decreased [Recovered/Resolved]
  - Marrow hyperplasia [Unknown]
  - Agranulocytosis [Recovered/Resolved]
  - Red blood cell sedimentation rate increased [Unknown]
